FAERS Safety Report 15724251 (Version 1)
Quarter: 2018Q4

REPORT INFORMATION
  Report Type: Spontaneous
  Country: US (occurrence: US)
  Receive Date: 20181214
  Receipt Date: 20181214
  Transmission Date: 20190205
  Serious: No
  Sender: FDA-Public Use
  Company Number: US-GLAXOSMITHKLINE-US2018219581

PATIENT
  Age: 60 Year
  Sex: Female

DRUGS (2)
  1. METHOTREXATE. [Concomitant]
     Active Substance: METHOTREXATE
  2. BENLYSTA [Suspect]
     Active Substance: BELIMUMAB
     Indication: SYSTEMIC LUPUS ERYTHEMATOSUS
     Route: 058
     Dates: start: 20181101

REACTIONS (10)
  - Fall [Unknown]
  - Asthenia [Unknown]
  - Nausea [Unknown]
  - Pyrexia [Unknown]
  - Influenza like illness [Unknown]
  - Contusion [Unknown]
  - Rhinorrhoea [Unknown]
  - Pain [Unknown]
  - Diarrhoea [Unknown]
  - Balance disorder [Unknown]

NARRATIVE: CASE EVENT DATE: 201811
